FAERS Safety Report 15179844 (Version 15)
Quarter: 2023Q1

REPORT INFORMATION
  Report Type: Spontaneous
  Country: GB (occurrence: GB)
  Receive Date: 20180723
  Receipt Date: 20230227
  Transmission Date: 20230417
  Serious: Yes (Life-Threatening, Hospitalization, Disabling, Other)
  Sender: FDA-Public Use
  Company Number: None

PATIENT
  Age: 42 Year
  Sex: Female
  Weight: 98 kg

DRUGS (45)
  1. LETROZOLE [Suspect]
     Active Substance: LETROZOLE
     Indication: HER2 positive breast cancer
     Dosage: 2.5 MG, QD
     Route: 048
     Dates: start: 20170124
  2. DOCETAXEL [Suspect]
     Active Substance: DOCETAXEL
     Indication: Breast cancer metastatic
     Dosage: 160 MG, QMO
     Route: 042
     Dates: start: 20160708
  3. DOCETAXEL [Suspect]
     Active Substance: DOCETAXEL
     Dosage: 160 MG, QMO
     Route: 042
     Dates: start: 20160718, end: 20160830
  4. DOCETAXEL [Suspect]
     Active Substance: DOCETAXEL
     Dosage: 160 MG, QMO
     Route: 042
     Dates: start: 20160808
  5. DOCETAXEL [Suspect]
     Active Substance: DOCETAXEL
     Dosage: 164 MG, QMO
     Route: 042
     Dates: start: 20160830
  6. TRASTUZUMAB [Suspect]
     Active Substance: TRASTUZUMAB
     Indication: Breast cancer metastatic
     Dosage: 798 MG, LOADING
     Route: 042
     Dates: start: 20160718, end: 20160718
  7. TRASTUZUMAB [Suspect]
     Active Substance: TRASTUZUMAB
     Dosage: 588 MG, QMO
     Route: 042
     Dates: start: 20160808, end: 20160808
  8. TRASTUZUMAB [Suspect]
     Active Substance: TRASTUZUMAB
     Dosage: 609 MG, QMO
     Route: 042
     Dates: start: 20160830, end: 20160830
  9. TRASTUZUMAB [Suspect]
     Active Substance: TRASTUZUMAB
     Dosage: 420 MG
     Route: 042
     Dates: start: 20160808, end: 20160830
  10. TRASTUZUMAB [Suspect]
     Active Substance: TRASTUZUMAB
     Dosage: 798 MG, QMO (798 MILLIGRAM, MONTHLY, LOADING)
     Route: 042
     Dates: start: 20160718, end: 20160830
  11. PERTUZUMAB [Suspect]
     Active Substance: PERTUZUMAB
     Indication: Breast cancer metastatic
     Dosage: 840 MG (LOADING DOSE)
     Route: 042
     Dates: start: 20160718, end: 20160808
  12. PERTUZUMAB [Suspect]
     Active Substance: PERTUZUMAB
     Dosage: 840 MG FIRST DOSE THEN 420 MG
     Route: 042
     Dates: start: 20160808, end: 20160830
  13. TINZAPARIN [Concomitant]
     Active Substance: TINZAPARIN
     Indication: Product used for unknown indication
     Dosage: UNK
     Route: 065
  14. FLUCLOXACILLIN [Concomitant]
     Active Substance: FLUCLOXACILLIN
     Indication: Product used for unknown indication
     Dosage: UNK
     Route: 065
  15. MAGNASPARTATE [Concomitant]
     Indication: Blood magnesium decreased
     Dosage: 10 MMOL
     Route: 065
     Dates: start: 20160908
  16. ONDANSETRON [Concomitant]
     Active Substance: ONDANSETRON
     Indication: Nausea
     Dosage: 4 MG
     Route: 048
     Dates: start: 20160908
  17. ACETAMINOPHEN [Concomitant]
     Active Substance: ACETAMINOPHEN
     Indication: Pain
     Dosage: 1 G
     Route: 048
     Dates: start: 20160908
  18. CYCLIZINE [Concomitant]
     Active Substance: CYCLIZINE
     Indication: Nausea
     Dosage: 50 MG, PRN (AS NEEDED)
     Route: 048
     Dates: start: 20160908
  19. DIHYDROCODEINE [Concomitant]
     Active Substance: DIHYDROCODEINE
     Indication: Pain
     Dosage: 30 MG
     Route: 048
     Dates: start: 20160908
  20. CITALOPRAM [Concomitant]
     Active Substance: CITALOPRAM HYDROBROMIDE
     Indication: Depression
     Dosage: 20 MG, QD
     Route: 048
     Dates: start: 20160921
  21. MAGNESIUM SULFATE [Concomitant]
     Active Substance: MAGNESIUM SULFATE
     Indication: Product used for unknown indication
     Dosage: UNK
     Route: 065
  22. POTASSIUM CHLORIDE [Concomitant]
     Active Substance: POTASSIUM CHLORIDE
     Indication: Product used for unknown indication
     Dosage: UNK
     Route: 065
  23. TRANEXAMIC ACID [Concomitant]
     Active Substance: TRANEXAMIC ACID
     Indication: Product used for unknown indication
     Dosage: UNK
     Route: 065
  24. LEVOMEPROMAZINE [Concomitant]
     Active Substance: LEVOMEPROMAZINE
     Indication: Product used for unknown indication
     Dosage: UNK
     Route: 065
  25. NOREPINEPHRINE [Concomitant]
     Active Substance: NOREPINEPHRINE
     Indication: Product used for unknown indication
     Dosage: UNK
     Route: 065
  26. CODEINE [Concomitant]
     Active Substance: CODEINE
     Indication: Product used for unknown indication
     Dosage: UNK
     Route: 065
  27. GLUCOGEL [Concomitant]
     Indication: Product used for unknown indication
     Dosage: UNK
     Route: 065
  28. MEROPENEM [Concomitant]
     Active Substance: MEROPENEM
     Indication: Product used for unknown indication
     Dosage: UNK
     Route: 065
  29. TAUROLIDINE [Concomitant]
     Active Substance: TAUROLIDINE
     Indication: Product used for unknown indication
     Dosage: UNK
     Route: 065
  30. OXYCODONE HYDROCHLORIDE [Concomitant]
     Active Substance: OXYCODONE HYDROCHLORIDE
     Indication: Pain
     Dosage: UNK
     Route: 065
  31. NITROGLYCERIN [Concomitant]
     Active Substance: NITROGLYCERIN
     Indication: Product used for unknown indication
     Dosage: UNK
     Route: 065
  32. ZOPICLONE [Concomitant]
     Active Substance: ZOPICLONE
     Indication: Product used for unknown indication
     Dosage: UNK
     Route: 065
  33. DANAPAROID [Concomitant]
     Active Substance: DANAPAROID
     Indication: Product used for unknown indication
     Dosage: UNK
     Route: 065
  34. ALFENTANIL [Concomitant]
     Active Substance: ALFENTANIL
     Indication: Product used for unknown indication
     Dosage: UNK
     Route: 065
  35. MORPHINE [Concomitant]
     Active Substance: MORPHINE
     Indication: Product used for unknown indication
     Dosage: UNK
     Route: 065
  36. ERDOSTEINE [Concomitant]
     Active Substance: ERDOSTEINE
     Indication: Product used for unknown indication
     Dosage: UNK
     Route: 065
  37. DEXTROSE [Concomitant]
     Active Substance: DEXTROSE
     Indication: Product used for unknown indication
     Dosage: UNK
     Route: 065
  38. GENTAMICIN [Concomitant]
     Active Substance: GENTAMICIN
     Indication: Product used for unknown indication
     Dosage: UNK
     Route: 065
  39. SODIUM LACTATE [Concomitant]
     Active Substance: SODIUM LACTATE
     Indication: Product used for unknown indication
     Dosage: UNK
     Route: 065
  40. CALCIUM CHLORIDE [Concomitant]
     Active Substance: CALCIUM CHLORIDE
     Indication: Product used for unknown indication
     Dosage: UNK
     Route: 065
  41. NOREPINEPHRINE [Concomitant]
     Active Substance: NOREPINEPHRINE
     Indication: Product used for unknown indication
     Dosage: UNK
     Route: 065
  42. MORPHINE SULFATE [Concomitant]
     Active Substance: MORPHINE SULFATE
     Indication: Product used for unknown indication
     Dosage: UNK
     Route: 065
  43. TAUROLIDINE [Concomitant]
     Active Substance: TAUROLIDINE
     Indication: Product used for unknown indication
     Dosage: UNK
     Route: 065
  44. MORPHINE SULFATE [Concomitant]
     Active Substance: MORPHINE SULFATE
     Indication: Product used for unknown indication
     Dosage: UNK
     Route: 065
  45. SODIUM CITRATE [Concomitant]
     Active Substance: SODIUM CITRATE
     Indication: Product used for unknown indication
     Dosage: UNK
     Route: 065

REACTIONS (14)
  - Peritonitis [Recovered/Resolved]
  - Perforation [Recovering/Resolving]
  - Diarrhoea [Recovered/Resolved]
  - Pneumonia [Recovered/Resolved]
  - Colitis [Recovering/Resolving]
  - Acute kidney injury [Unknown]
  - Colitis ischaemic [Not Recovered/Not Resolved]
  - Vomiting [Recovered/Resolved with Sequelae]
  - Abdominal pain [Recovered/Resolved with Sequelae]
  - Rash [Unknown]
  - Colitis [Recovered/Resolved]
  - Neutropenic sepsis [Not Recovered/Not Resolved]
  - Vomiting [Recovered/Resolved]
  - Abdominal pain [Recovered/Resolved]

NARRATIVE: CASE EVENT DATE: 20160803
